FAERS Safety Report 18391227 (Version 1)
Quarter: 2020Q4

REPORT INFORMATION
  Report Type: Spontaneous
  Country: IN (occurrence: IN)
  Receive Date: 20201016
  Receipt Date: 20201016
  Transmission Date: 20210114
  Serious: Yes (Death, Life-Threatening, Hospitalization, Other)
  Sender: FDA-Public Use
  Company Number: IN-AXELLIA-003425

PATIENT
  Age: 52 Year
  Sex: Male

DRUGS (3)
  1. GENTAMICIN. [Suspect]
     Active Substance: GENTAMICIN
     Indication: PSEUDOMONAS INFECTION
     Dosage: 80 MG RECEIVED VIA INTRAVENOUS
     Route: 020
  2. COLISTIN [Suspect]
     Active Substance: COLISTIN
     Indication: PSEUDOMONAS INFECTION
     Dosage: 120000 IU AND 4.5 MILLION VIA INTRAVENOUS
     Route: 020
  3. CEFTAZIDIME/CEFTAZIDIME PENTAHYDRATE [Concomitant]
     Active Substance: CEFTAZIDIME
     Indication: PSEUDOMONAS INFECTION

REACTIONS (7)
  - Status epilepticus [Not Recovered/Not Resolved]
  - Intraventricular haemorrhage [Fatal]
  - Circulatory collapse [Not Recovered/Not Resolved]
  - Brain death [Fatal]
  - CNS ventriculitis [Fatal]
  - Epilepsy [Not Recovered/Not Resolved]
  - Hypertension [Not Recovered/Not Resolved]
